FAERS Safety Report 8029414-8 (Version None)
Quarter: 2012Q1

REPORT INFORMATION
  Report Type: 
  Country: None (occurrence: None)
  Receive Date: 20120106
  Receipt Date: 20120103
  Transmission Date: 20120608
  Serious: Yes (Life-Threatening)
  Sender: FDA-Public Use
  Company Number: GB-ASTRAZENECA-2012SE00340

PATIENT
  Age: 56 Year
  Sex: Female

DRUGS (3)
  1. LIDOCAINE [Suspect]
     Indication: LOCAL ANAESTHESIA
     Dosage: 10 MG/ML
     Route: 040
     Dates: start: 20111214
  2. ADCORTYL [Suspect]
     Dosage: 50 MG/5 ML
     Route: 014
  3. CHIROCAINE [Suspect]
     Indication: LOCAL ANAESTHESIA
     Dosage: 5 MG/ML
     Route: 040
     Dates: start: 20111214

REACTIONS (3)
  - ANAPHYLACTIC REACTION [None]
  - LIP SWELLING [None]
  - DYSPNOEA [None]
